FAERS Safety Report 24922610 (Version 1)
Quarter: 2025Q1

REPORT INFORMATION
  Report Type: Spontaneous
  Country: US (occurrence: US)
  Receive Date: 20250204
  Receipt Date: 20250204
  Transmission Date: 20250409
  Serious: Yes (Other)
  Sender: SANOFI AVENTIS
  Company Number: US-SA-2024SA306611

PATIENT
  Age: 61 Year
  Sex: Female
  Weight: 113.64 kg

DRUGS (2)
  1. DUPIXENT [Suspect]
     Active Substance: DUPILUMAB
     Indication: Product used for unknown indication
     Dosage: 300 MG, QOW
     Route: 058
     Dates: start: 2024
  2. STELARA [Concomitant]
     Active Substance: USTEKINUMAB

REACTIONS (4)
  - Crohn^s disease [Unknown]
  - Surgery [Unknown]
  - Condition aggravated [Unknown]
  - Skin haemorrhage [Unknown]

NARRATIVE: CASE EVENT DATE: 20240101
